FAERS Safety Report 8068498-8 (Version None)
Quarter: 2012Q1

REPORT INFORMATION
  Report Type: 
  Country: None (occurrence: None)
  Receive Date: 20120124
  Receipt Date: 20111028
  Transmission Date: 20120608
  Serious: No
  Sender: FDA-Public Use
  Company Number: US-AMGEN-USASP2011056140

PATIENT
  Age: 83 Year
  Sex: Female

DRUGS (11)
  1. METFORMIN HCL [Concomitant]
  2. PROLIA [Suspect]
     Indication: OSTEOPOROSIS POSTMENOPAUSAL
     Dosage: 60 MG, Q6MO
     Dates: start: 20110827
  3. POTASSIUM CHLORIDE [Concomitant]
     Dates: start: 20110101
  4. LASIX [Concomitant]
     Dates: start: 20110101
  5. OMEPRAZOLE [Concomitant]
  6. VITAMIN D [Concomitant]
  7. LOSARTAN POTASSIUM [Concomitant]
  8. MULTIVITAMIN                       /00097801/ [Concomitant]
     Dosage: 2 UNK, UNK
  9. FISH OIL [Concomitant]
  10. CALTRATE                           /00751519/ [Concomitant]
  11. LATANOPROST ACTAVIS [Concomitant]

REACTIONS (13)
  - BLOOD CHOLESTEROL ABNORMAL [None]
  - GAIT DISTURBANCE [None]
  - CHILLS [None]
  - FEELING HOT [None]
  - CARDIOMEGALY [None]
  - ARTERIAL DISORDER [None]
  - INFLUENZA LIKE ILLNESS [None]
  - DYSPNOEA [None]
  - WHEEZING [None]
  - PAIN IN EXTREMITY [None]
  - CARDIAC DISORDER [None]
  - SCIATICA [None]
  - MUSCULOSKELETAL STIFFNESS [None]
